FAERS Safety Report 11089147 (Version 1)
Quarter: 2015Q2

REPORT INFORMATION
  Report Type: Report from Study
  Country: US (occurrence: US)
  Receive Date: 20150505
  Receipt Date: 20150505
  Transmission Date: 20150821
  Serious: Yes (Life-Threatening, Hospitalization, Other)
  Sender: FDA-Public Use
  Company Number: US-ROCHE-638139

PATIENT

DRUGS (2)
  1. BEVACIZUMAB [Suspect]
     Active Substance: BEVACIZUMAB
     Indication: BREAST CANCER METASTATIC
     Route: 042
  2. CAPECITABINE. [Suspect]
     Active Substance: CAPECITABINE
     Indication: BREAST CANCER METASTATIC
     Route: 048

REACTIONS (10)
  - Chest pain [Unknown]
  - Palmar-plantar erythrodysaesthesia syndrome [Unknown]
  - Aspartate aminotransferase abnormal [Unknown]
  - Fatigue [Unknown]
  - Pulmonary embolism [Unknown]
  - Alanine aminotransferase abnormal [Unknown]
  - Neutropenia [Unknown]
  - Abdominal pain upper [Unknown]
  - Hypertension [Unknown]
  - Thrombosis [Unknown]
